FAERS Safety Report 10597563 (Version 1)
Quarter: 2014Q4

REPORT INFORMATION
  Report Type: Spontaneous
  Country: US (occurrence: None)
  Receive Date: 20141120
  Receipt Date: 20141120
  Transmission Date: 20150529
  Serious: Yes (Disabling)
  Sender: FDA-Public Use
  Company Number: None

PATIENT
  Age: 82 Year
  Sex: Female
  Weight: 47.63 kg

DRUGS (2)
  1. XANAX [Concomitant]
     Active Substance: ALPRAZOLAM
  2. DEPO-MEDROL [Suspect]
     Active Substance: METHYLPREDNISOLONE ACETATE
     Indication: JOINT INJURY
     Dates: start: 20140708, end: 20140708

REACTIONS (6)
  - Insomnia [None]
  - Headache [None]
  - Pain [None]
  - Fatigue [None]
  - Anxiety [None]
  - Toxicity to various agents [None]

NARRATIVE: CASE EVENT DATE: 20140708
